FAERS Safety Report 15710680 (Version 1)
Quarter: 2018Q4

REPORT INFORMATION
  Report Type: Spontaneous
  Country: US (occurrence: US)
  Receive Date: 20181211
  Receipt Date: 20181211
  Transmission Date: 20190205
  Serious: Yes (Other)
  Sender: FDA-Public Use
  Company Number: US-SAKK-2018SA326876AA

PATIENT
  Age: 51 Year
  Sex: Male

DRUGS (2)
  1. LANTUS [Suspect]
     Active Substance: INSULIN GLARGINE
     Indication: TYPE 2 DIABETES MELLITUS
     Dosage: UNK
  2. INSULIN LISPRO [Suspect]
     Active Substance: INSULIN LISPRO
     Indication: TYPE 2 DIABETES MELLITUS

REACTIONS (7)
  - Nervousness [Unknown]
  - Feeling abnormal [Unknown]
  - Confusional state [Unknown]
  - Tremor [Unknown]
  - Dizziness [Unknown]
  - Neuropathy peripheral [Unknown]
  - Pain in extremity [Unknown]
